FAERS Safety Report 26107903 (Version 1)
Quarter: 2025Q4

REPORT INFORMATION
  Report Type: Spontaneous
  Country: US (occurrence: None)
  Receive Date: 20251127
  Receipt Date: 20251127
  Transmission Date: 20260117
  Serious: No
  Sender: FDA-CTU
  Company Number: None

PATIENT
  Age: 34 Year
  Sex: Female
  Weight: 77.85 kg

DRUGS (3)
  1. METHYLCOBALAMIN\SEMAGLUTIDE [Suspect]
     Active Substance: METHYLCOBALAMIN\SEMAGLUTIDE
     Dates: start: 20251123
  2. Multi women^s vitamin [Concomitant]
  3. Glp1 [Concomitant]

REACTIONS (4)
  - Headache [None]
  - Fatigue [None]
  - Asthenia [None]
  - Suspected product quality issue [None]

NARRATIVE: CASE EVENT DATE: 20251125
